FAERS Safety Report 6247431-5 (Version None)
Quarter: 2009Q2

REPORT INFORMATION
  Report Type: 
  Country: None (occurrence: None)
  Receive Date: 20090626
  Receipt Date: 20090617
  Transmission Date: 20091009
  Serious: Yes (Other)
  Sender: FDA-Public Use
  Company Number: US-ABBOTT-09P-163-0580339-00

PATIENT
  Sex: Female
  Weight: 60.382 kg

DRUGS (7)
  1. SYNTHROID [Suspect]
     Indication: HYPOTHYROIDISM
     Route: 048
     Dates: start: 19640101
  2. TERBINAFINE HCL [Suspect]
     Indication: TINEA PEDIS
     Dates: start: 20090101, end: 20090501
  3. FOSAMAX [Concomitant]
     Indication: OSTEOPOROSIS
  4. VITAMIN B-12 [Concomitant]
     Indication: VITAMIN SUPPLEMENTATION
  5. VITAMIN D [Concomitant]
     Indication: VITAMIN SUPPLEMENTATION
  6. VIACTIV [Concomitant]
     Indication: MINERAL SUPPLEMENTATION
  7. ZOCOR [Concomitant]
     Indication: BLOOD CHOLESTEROL INCREASED
     Dates: start: 20010101

REACTIONS (7)
  - CHEST PAIN [None]
  - CORONARY ARTERY OCCLUSION [None]
  - FALL [None]
  - FATIGUE [None]
  - HEPATIC ENZYME INCREASED [None]
  - LOWER LIMB FRACTURE [None]
  - TINEA PEDIS [None]
